FAERS Safety Report 16835802 (Version 3)
Quarter: 2019Q4

REPORT INFORMATION
  Report Type: Report from Study
  Country: US (occurrence: US)
  Receive Date: 20190920
  Receipt Date: 20191028
  Transmission Date: 20200122
  Serious: Yes (Other)
  Sender: FDA-Public Use
  Company Number: US-GLAXOSMITHKLINE-2019-TSO01372-US

PATIENT
  Age: 61 Year
  Sex: Female

DRUGS (3)
  1. NIRAPARIB [Suspect]
     Active Substance: NIRAPARIB
     Indication: OVARIAN CANCER
  2. CEPHALEXINE [Concomitant]
     Active Substance: CEPHALEXIN
     Indication: URINARY TRACT INFECTION
     Dosage: 500 MG, BID
  3. NIRAPARIB [Suspect]
     Active Substance: NIRAPARIB
     Indication: METASTASIS
     Dosage: 200 MG, QHS WITHOUT FOOD
     Route: 048
     Dates: start: 20190322, end: 2019

REACTIONS (19)
  - Fatigue [Not Recovered/Not Resolved]
  - Gait disturbance [Unknown]
  - Blood calcium increased [Not Recovered/Not Resolved]
  - Secretion discharge [Unknown]
  - Blood calcium decreased [Unknown]
  - Asthenia [Not Recovered/Not Resolved]
  - Product use in unapproved indication [Unknown]
  - Recurrent cancer [Unknown]
  - Lower respiratory tract infection [Recovered/Resolved]
  - Dry eye [Not Recovered/Not Resolved]
  - Nasopharyngitis [Recovered/Resolved]
  - Constipation [Recovered/Resolved]
  - Vision blurred [Not Recovered/Not Resolved]
  - Blood urea increased [Unknown]
  - Oedema peripheral [Not Recovered/Not Resolved]
  - Taste disorder [Not Recovered/Not Resolved]
  - Blood pressure increased [Not Recovered/Not Resolved]
  - Computerised tomogram abnormal [Unknown]
  - Vitreous floaters [Unknown]

NARRATIVE: CASE EVENT DATE: 20190405
